FAERS Safety Report 9800900 (Version 4)
Quarter: 2014Q1

REPORT INFORMATION
  Report Type: Spontaneous
  Country: FR (occurrence: FR)
  Receive Date: 20140107
  Receipt Date: 20140220
  Transmission Date: 20141002
  Serious: Yes (Hospitalization)
  Sender: FDA-Public Use
  Company Number: FR-RANBAXY-2013US-76694

PATIENT
  Age: 42 Year
  Sex: Male

DRUGS (7)
  1. PARACETAMOL [Suspect]
     Indication: PRODUCT USED FOR UNKNOWN INDICATION
     Dosage: 3 G, DAILY
     Route: 048
     Dates: start: 20131108, end: 20131114
  2. BI PROFENID [Suspect]
     Indication: PRODUCT USED FOR UNKNOWN INDICATION
     Dosage: 200 MG, DAILY
     Route: 048
     Dates: start: 20131109, end: 20131111
  3. EUPANTOL [Suspect]
     Indication: PRODUCT USED FOR UNKNOWN INDICATION
     Dosage: 20MG, DAILY
     Route: 048
     Dates: start: 20131109, end: 20131114
  4. MIOREL [Suspect]
     Indication: MUSCLE CONTRACTURE
     Dosage: UNK
     Route: 048
     Dates: end: 20131113
  5. SKENAN [Suspect]
     Indication: PAIN
     Dosage: 10 MG, BID
     Route: 048
     Dates: start: 20131108, end: 20131113
  6. TOPALGIC [Suspect]
     Indication: PRODUCT USED FOR UNKNOWN INDICATION
     Dosage: 50 MG, TID
     Route: 048
     Dates: start: 20131108, end: 20131112
  7. XARELTO [Suspect]
     Indication: PROPHYLAXIS
     Dosage: 10MG, DAILY
     Route: 048
     Dates: start: 20131108, end: 20131113

REACTIONS (2)
  - Dyspepsia [Recovered/Resolved]
  - Nausea [Recovered/Resolved]
